FAERS Safety Report 12332812 (Version 4)
Quarter: 2016Q4

REPORT INFORMATION
  Report Type: Spontaneous
  Country: US (occurrence: US)
  Receive Date: 20160504
  Receipt Date: 20161118
  Transmission Date: 20170207
  Serious: Yes (Death)
  Sender: FDA-Public Use
  Company Number: US-ROCHE-1718708

PATIENT
  Age: 72 Year
  Sex: Female
  Weight: 80.5 kg

DRUGS (1)
  1. ESBRIET [Suspect]
     Active Substance: PIRFENIDONE
     Indication: IDIOPATHIC PULMONARY FIBROSIS
     Dosage: ON 28/JAN/2016 ALSO SHE RECEIVED THE SAME DOSE.
     Route: 048
     Dates: start: 201512, end: 20161029

REACTIONS (3)
  - Death [Fatal]
  - Abdominal pain upper [Unknown]
  - Gastric dilatation [Not Recovered/Not Resolved]

NARRATIVE: CASE EVENT DATE: 20160125
